FAERS Safety Report 4444276-3 (Version None)
Quarter: 2004Q3

REPORT INFORMATION
  Report Type: 
  Country: None (occurrence: None)
  Receive Date: 20040812
  Receipt Date: 20040126
  Transmission Date: 20050211
  Serious: Yes (Hospitalization)
  Sender: FDA-Public Use
  Company Number: USA020921349

PATIENT
  Age: 72 Year
  Sex: Female
  Weight: 52 kg

DRUGS (11)
  1. HUMALOG [Suspect]
     Indication: DIABETES MELLITUS
     Dates: start: 20011001
  2. HUMULIN N [Suspect]
     Indication: DIABETES MELLITUS
  3. LENTE ILETIN (BEEF-PORK) INSULIN ZINC [Suspect]
     Indication: DIABETES MELLITUS
  4. HUMULIN L [Suspect]
     Indication: DIABETES MELLITUS
  5. ZYPREXA [Suspect]
     Dosage: 10 MG/DAY
     Dates: start: 20031201
  6. HUMULIN R [Suspect]
     Indication: DIABETES MELLITUS
  7. LANTUS [Concomitant]
  8. PREVACID [Concomitant]
  9. ATIVAN [Concomitant]
  10. THYROID TAB [Concomitant]
  11. PLAVIX [Concomitant]

REACTIONS (7)
  - BLOOD GLUCOSE DECREASED [None]
  - BLOOD GLUCOSE INCREASED [None]
  - CEREBROVASCULAR ACCIDENT [None]
  - FALL [None]
  - HIP FRACTURE [None]
  - IRRITABILITY [None]
  - TRIPLE VESSEL BYPASS GRAFT [None]
